FAERS Safety Report 5308974-1 (Version None)
Quarter: 2007Q2

REPORT INFORMATION
  Report Type: 
  Country: None (occurrence: None)
  Receive Date: 20070426
  Receipt Date: 20070416
  Transmission Date: 20071010
  Serious: Yes (Hospitalization)
  Sender: FDA-Public Use
  Company Number: FR-PFIZER INC-2007029275

PATIENT
  Age: 74 Year
  Sex: Male

DRUGS (13)
  1. ALDACTONE [Suspect]
     Indication: CARDIOMYOPATHY
     Dosage: TEXT:1 DOSE FORM-FREQ:DAILY
     Route: 048
  2. KENZEN [Interacting]
     Indication: CARDIOMYOPATHY
     Dosage: DAILY DOSE:24MG-FREQ:DAILY
     Route: 048
  3. CARDENSIEL [Interacting]
     Indication: CARDIOMYOPATHY
     Dosage: DAILY DOSE:5MG-FREQ:DAILY
     Route: 048
  4. PIROXICAM [Interacting]
     Dosage: TEXT:1 DOSE FORM-FREQ:DAILY
     Route: 048
  5. LANTUS [Concomitant]
     Indication: DIABETES MELLITUS
     Route: 058
  6. LASIX [Concomitant]
     Indication: CARDIOMYOPATHY
     Route: 048
  7. LIPUR [Concomitant]
  8. METFORMIN HCL [Concomitant]
  9. PREVISCAN [Concomitant]
  10. AMIODARONE HCL [Concomitant]
  11. PARACETAMOL [Concomitant]
  12. DITROPAN [Concomitant]
  13. NOVORAPID [Concomitant]

REACTIONS (3)
  - DRUG INTERACTION [None]
  - HYPERKALAEMIA [None]
  - RENAL FAILURE [None]
